FAERS Safety Report 21554793 (Version 1)
Quarter: 2022Q4

REPORT INFORMATION
  Report Type: Spontaneous
  Country: DE (occurrence: DE)
  Receive Date: 20221104
  Receipt Date: 20221104
  Transmission Date: 20230112
  Serious: Yes (Other)
  Sender: FDA-Public Use
  Company Number: None

PATIENT
  Age: 21 Year
  Sex: Female
  Weight: 63 kg

DRUGS (1)
  1. SALBUHEXAL [Suspect]
     Active Substance: ALBUTEROL
     Indication: Asthma
     Dosage: UNK  (BIS ZU 10 MAL AM TAG 1-2 SPRUHSTOBE)
     Dates: start: 20221018, end: 202210

REACTIONS (1)
  - Hallucination [Recovering/Resolving]

NARRATIVE: CASE EVENT DATE: 20221022
